FAERS Safety Report 5432989-6 (Version None)
Quarter: 2007Q3

REPORT INFORMATION
  Report Type: 
  Country: None (occurrence: None)
  Receive Date: 20070831
  Receipt Date: 20070828
  Transmission Date: 20080115
  Serious: Yes (Life-Threatening, Hospitalization)
  Sender: FDA-Public Use
  Company Number: PHNU2007DE02979

PATIENT
  Age: 75 Year
  Sex: Female
  Weight: 65 kg

DRUGS (14)
  1. DIGITOXIN TAB [Concomitant]
     Indication: HELICOBACTER GASTRITIS
     Dosage: 1 DF, QD
     Route: 048
     Dates: start: 19780101, end: 20060101
  2. DIGITOXIN TAB [Concomitant]
     Dosage: 500 MG/DAY
     Route: 048
     Dates: start: 20060610, end: 20060619
  3. CANDESARTAN CILEXETIL [Concomitant]
     Indication: HYPERTENSION
     Dosage: 0.5 QD
     Route: 048
     Dates: start: 19920101, end: 20060908
  4. VITAMIN B [Concomitant]
     Indication: TRIGEMINAL NEURALGIA
     Dosage: 1 DF, QD
     Route: 048
     Dates: start: 20050301, end: 20060908
  5. SICCAPOS GEL [Concomitant]
     Route: 065
     Dates: end: 20060908
  6. INFLUENZA VACCINE [Concomitant]
     Dosage: 1 DF, ONCE/SINGLE
     Dates: start: 20051001, end: 20051001
  7. VOLTAREN [Suspect]
     Indication: ARTHRALGIA
     Dosage: UNK, PRN
     Route: 061
     Dates: start: 19970101, end: 20060804
  8. DICLOFENAC [Concomitant]
     Dosage: 1 DF, QW2
     Route: 065
     Dates: start: 19970101, end: 20051001
  9. IBUPROFEN [Concomitant]
     Dosage: 1 DF, QW
     Route: 065
     Dates: start: 20051001, end: 20060401
  10. PHENPROCOUMON [Concomitant]
     Route: 065
     Dates: start: 20050701, end: 20060704
  11. LEGALON [Concomitant]
     Dosage: 0-1-0/DAY
     Route: 065
     Dates: start: 20060704, end: 20060719
  12. PREDNISOLONE [Concomitant]
     Dosage: 1-0-0/DAY
     Route: 065
  13. ENDOXAN [Concomitant]
     Dosage: 1-0-0
     Route: 065
  14. NEXIUM [Concomitant]
     Dosage: 0-0-1
     Route: 065

REACTIONS (14)
  - ANAEMIA HAEMOLYTIC AUTOIMMUNE [None]
  - ANTIBODY TEST POSITIVE [None]
  - BLOOD LACTATE DEHYDROGENASE INCREASED [None]
  - C-REACTIVE PROTEIN INCREASED [None]
  - COOMBS TEST POSITIVE [None]
  - HAEMOGLOBIN DECREASED [None]
  - HAPTOGLOBIN DECREASED [None]
  - HYPERBILIRUBINAEMIA [None]
  - JAUNDICE [None]
  - RED BLOOD CELL COUNT DECREASED [None]
  - RETICULOCYTOSIS [None]
  - SPLENOMEGALY [None]
  - TRANSAMINASES INCREASED [None]
  - URINE COLOUR ABNORMAL [None]
